FAERS Safety Report 9986315 (Version 1)
Quarter: 2014Q1

REPORT INFORMATION
  Report Type: Report from Study
  Country: US (occurrence: US)
  Receive Date: 20140307
  Receipt Date: 20140307
  Transmission Date: 20141002
  Serious: No
  Sender: FDA-Public Use
  Company Number: US-ABBVIE-13P-163-1085511-00

PATIENT
  Age: 63 Year
  Sex: Female

DRUGS (9)
  1. HUMIRA [Suspect]
     Indication: RHEUMATOID ARTHRITIS
     Dates: start: 20120703
  2. ALENDRONATE [Concomitant]
     Indication: MINERAL SUPPLEMENTATION
     Dosage: WEEKLY
  3. METFORMIN [Concomitant]
     Indication: DIABETES MELLITUS
  4. NOVOLOG [Concomitant]
     Indication: DIABETES MELLITUS
  5. LANTUS [Concomitant]
     Indication: DIABETES MELLITUS
     Dosage: BEFORE BED
  6. ASPIRIN [Concomitant]
     Indication: PRODUCT USED FOR UNKNOWN INDICATION
  7. METOPROLOL [Concomitant]
     Indication: CARDIOVASCULAR EVENT PROPHYLAXIS
     Dosage: 2 TABS, TWICE DAILY
  8. AMLODIPINE [Concomitant]
     Indication: HYPERTENSION
  9. SIMVASTATIN [Concomitant]
     Indication: BLOOD CHOLESTEROL INCREASED
     Dosage: 1 TAB AT NIGHT

REACTIONS (3)
  - Fatigue [Not Recovered/Not Resolved]
  - Nasopharyngitis [Not Recovered/Not Resolved]
  - Chest pain [Not Recovered/Not Resolved]
